FAERS Safety Report 5570303-6 (Version None)
Quarter: 2007Q4

REPORT INFORMATION
  Report Type: 
  Country: None (occurrence: None)
  Receive Date: 20071219
  Receipt Date: 20071219
  Transmission Date: 20080405
  Serious: Yes (Hospitalization)
  Sender: FDA-Public Use
  Company Number: None

PATIENT
  Sex: Male
  Weight: 68.8 kg

DRUGS (2)
  1. CLOLAR [Suspect]
     Dosage: 73 MG
  2. CYTARABINE [Suspect]
     Dosage: 1800 MG

REACTIONS (12)
  - BLOOD LACTIC ACID INCREASED [None]
  - CAECITIS [None]
  - COLITIS [None]
  - ENTEROBACTER INFECTION [None]
  - ENTEROCOCCAL INFECTION [None]
  - FUNGAL INFECTION [None]
  - HYPOTENSION [None]
  - PSEUDOMONAS INFECTION [None]
  - REFUSAL OF TREATMENT BY RELATIVE [None]
  - SEPSIS [None]
  - TACHYPNOEA [None]
  - WHITE BLOOD CELL COUNT DECREASED [None]
